FAERS Safety Report 10380292 (Version 1)
Quarter: 2014Q3

REPORT INFORMATION
  Report Type: Spontaneous
  Country: US (occurrence: None)
  Receive Date: 20140812
  Receipt Date: 20140812
  Transmission Date: 20150326
  Serious: No
  Sender: FDA-Public Use
  Company Number: None

PATIENT
  Age: 54 Year
  Sex: Female
  Weight: 74.84 kg

DRUGS (1)
  1. LEVOTHYROXINE [Suspect]
     Active Substance: LEVOTHYROXINE
     Indication: HYPOTHYROIDISM
     Dosage: (25 MCG)  1 - PILL PER DAY  1-PILL EACH MORNING  SWALLOWED
     Route: 048
     Dates: start: 20140709, end: 20140721

REACTIONS (8)
  - Urticaria [None]
  - Product quality issue [None]
  - Pyrexia [None]
  - Chills [None]
  - Drug ineffective [None]
  - Drug dose omission [None]
  - Migraine [None]
  - Product substitution issue [None]

NARRATIVE: CASE EVENT DATE: 20140710
